FAERS Safety Report 21422777 (Version 1)
Quarter: 2022Q4

REPORT INFORMATION
  Report Type: Spontaneous
  Country: US (occurrence: None)
  Receive Date: 20221007
  Receipt Date: 20221007
  Transmission Date: 20230113
  Serious: Yes (Death)
  Sender: FDA-Public Use
  Company Number: 2022A338124

PATIENT
  Age: 26709 Day
  Sex: Female

DRUGS (1)
  1. SYMBICORT [Suspect]
     Active Substance: BUDESONIDE\FORMOTEROL FUMARATE DIHYDRATE
     Indication: Chronic obstructive pulmonary disease
     Dosage: 160 MCG/4.5 MCG, 2 INHALATIONS TWO TIMES A DAY
     Route: 055
     Dates: start: 20220821

REACTIONS (1)
  - Death [Fatal]

NARRATIVE: CASE EVENT DATE: 20220927
